FAERS Safety Report 10075095 (Version 1)
Quarter: 2014Q2

REPORT INFORMATION
  Report Type: Spontaneous
  Country: FR (occurrence: FR)
  Receive Date: 20140414
  Receipt Date: 20140414
  Transmission Date: 20141212
  Serious: Yes (Hospitalization)
  Sender: FDA-Public Use
  Company Number: FR-ROCHE-1376533

PATIENT
  Age: 75 Year
  Sex: Female

DRUGS (11)
  1. VALIUM [Suspect]
     Indication: PRODUCT USED FOR UNKNOWN INDICATION
     Route: 042
     Dates: start: 20130715, end: 20130715
  2. TERCIAN [Interacting]
     Indication: PRODUCT USED FOR UNKNOWN INDICATION
     Dosage: 50MG/5ML
     Route: 042
     Dates: start: 20130715, end: 20130715
  3. TERCIAN [Interacting]
     Dosage: 25MG
     Route: 048
     Dates: start: 20130715
  4. NOCTAMIDE [Suspect]
     Indication: PRODUCT USED FOR UNKNOWN INDICATION
     Dosage: 2 MG
     Route: 048
     Dates: start: 20130715
  5. ANAFRANIL [Interacting]
     Indication: PRODUCT USED FOR UNKNOWN INDICATION
     Dosage: 75MG
     Route: 048
     Dates: start: 20130716, end: 20130716
  6. SERESTA [Interacting]
     Indication: PRODUCT USED FOR UNKNOWN INDICATION
     Dosage: 50MG
     Route: 048
     Dates: start: 20130715, end: 20130716
  7. MIANSERINE [Interacting]
     Indication: PRODUCT USED FOR UNKNOWN INDICATION
     Route: 048
     Dates: start: 20130715, end: 20130715
  8. SEROPLEX [Interacting]
     Indication: PRODUCT USED FOR UNKNOWN INDICATION
     Route: 048
     Dates: end: 20130716
  9. LESCOL [Concomitant]
     Route: 065
  10. COTAREG [Concomitant]
     Dosage: 80/12.5MG
     Route: 065
  11. XEROQUEL [Concomitant]
     Route: 065

REACTIONS (2)
  - Coma [Recovered/Resolved]
  - Drug interaction [Unknown]
